FAERS Safety Report 13667061 (Version 1)
Quarter: 2017Q2

REPORT INFORMATION
  Report Type: Spontaneous
  Country: US (occurrence: US)
  Receive Date: 20170619
  Receipt Date: 20170619
  Transmission Date: 20170830
  Serious: No
  Sender: FDA-Public Use
  Company Number: US-ROCHE-1290267

PATIENT
  Age: 51 Year
  Sex: Female

DRUGS (10)
  1. XELODA [Suspect]
     Active Substance: CAPECITABINE
     Indication: BREAST CANCER FEMALE
     Dosage: 14 DAYS ON, 7 DAYS OFF
     Route: 048
  2. SYNTHROID [Concomitant]
     Active Substance: LEVOTHYROXINE SODIUM
     Route: 065
  3. PRILOSEC [Concomitant]
     Active Substance: OMEPRAZOLE MAGNESIUM
     Route: 065
  4. FISH OIL [Concomitant]
     Active Substance: FISH OIL
     Route: 065
  5. MOTRIN [Concomitant]
     Active Substance: IBUPROFEN
     Route: 065
  6. XELODA [Suspect]
     Active Substance: CAPECITABINE
     Indication: BREAST CANCER
     Dosage: 1500 MG IN AM AND 2000 MG IN PM
     Route: 048
  7. WELLBUTRIN XL [Concomitant]
     Active Substance: BUPROPION HYDROCHLORIDE
     Route: 065
  8. XELODA [Suspect]
     Active Substance: CAPECITABINE
     Dosage: 3 TABS MORNING AND 4 TAB EVENING 7 DAYS ON 7 OFF
     Route: 048
     Dates: start: 20130929
  9. PLAQUENIL [Concomitant]
     Active Substance: HYDROXYCHLOROQUINE SULFATE
     Route: 065
  10. XELODA [Suspect]
     Active Substance: CAPECITABINE
     Indication: METASTASES TO BREAST
     Route: 048
     Dates: start: 20131004, end: 20131016

REACTIONS (10)
  - Skin fissures [Recovered/Resolved]
  - Palmar-plantar erythrodysaesthesia syndrome [Unknown]
  - Pain in extremity [Unknown]
  - Pain in extremity [Recovered/Resolved]
  - Nasal dryness [Unknown]
  - Dry skin [Recovered/Resolved]
  - Dry mouth [Unknown]
  - Tongue discomfort [Recovered/Resolved]
  - Erythema [Unknown]
  - Neuropathy peripheral [Unknown]

NARRATIVE: CASE EVENT DATE: 20131015
